FAERS Safety Report 15012114 (Version 2)
Quarter: 2018Q2

REPORT INFORMATION
  Report Type: Spontaneous
  Country: US (occurrence: US)
  Receive Date: 20180614
  Receipt Date: 20180619
  Transmission Date: 20180711
  Serious: No
  Sender: FDA-Public Use
  Company Number: US-PFIZER INC-2018243874

PATIENT
  Age: 75 Year
  Sex: Female

DRUGS (2)
  1. CHANTIX [Suspect]
     Active Substance: VARENICLINE TARTRATE
     Indication: SMOKING CESSATION THERAPY
     Dosage: 1 DF, UNK (ONE OF THE SMALL DOSE)
     Dates: start: 201805, end: 201805
  2. CHANTIX [Suspect]
     Active Substance: VARENICLINE TARTRATE
     Dosage: 1 DF, 2X/DAY (ONE IN THE MORNING AND ONE IN THE EVENING)
     Dates: start: 201805, end: 201805

REACTIONS (3)
  - Lip swelling [Recovered/Resolved]
  - Feeling abnormal [Recovering/Resolving]
  - Paraesthesia oral [Recovered/Resolved]

NARRATIVE: CASE EVENT DATE: 201805
